FAERS Safety Report 8788482 (Version 1)
Quarter: 2012Q4

REPORT INFORMATION
  Report Type: 
  Country: US (occurrence: US)
  Receive Date: 20120914
  Receipt Date: 20120914
  Transmission Date: 20130627
  Serious: No
  Sender: FDA-Public Use
  Company Number: US-VERTEX PHARMACEUTICAL INC.-AE-2012-010707

PATIENT
  Age: 65 Year
  Sex: Male
  Weight: 94 kg

DRUGS (9)
  1. INCIVEK [Suspect]
     Indication: HEPATITIS C
     Dosage: 750 mg, tid
     Route: 048
     Dates: start: 20120717
  2. PEGASYS [Concomitant]
     Indication: HEPATITIS C
     Dosage: 180 ?g, weekly
     Route: 058
     Dates: start: 20120717, end: 20120724
  3. PEGASYS [Concomitant]
     Dosage: 135 ?g,  weekly
     Route: 058
     Dates: start: 20120724, end: 20120807
  4. PEGASYS [Concomitant]
     Dosage: 90 ?g, weekly
     Route: 058
     Dates: start: 20120807
  5. RIBAVIRIN [Concomitant]
     Indication: HEPATITIS C
     Dosage: 1000 mg, qd
     Route: 048
     Dates: start: 20120717
  6. RIBAVIRIN [Concomitant]
  7. SYNTHROID [Concomitant]
     Indication: THYROID DISORDER
     Dosage: 75 ?g, qd
     Route: 048
  8. WELLBUTRIN [Concomitant]
     Indication: DEPRESSION
     Dosage: 300 mg, qd
     Route: 048
  9. FLOMAX [Concomitant]

REACTIONS (7)
  - Inappropriate schedule of drug administration [Recovered/Resolved]
  - Arthralgia [Not Recovered/Not Resolved]
  - Feeling abnormal [Not Recovered/Not Resolved]
  - Dry mouth [Not Recovered/Not Resolved]
  - Platelet count decreased [Not Recovered/Not Resolved]
  - Haemorrhoids [Not Recovered/Not Resolved]
  - Anorectal discomfort [Not Recovered/Not Resolved]
